FAERS Safety Report 13084787 (Version 1)
Quarter: 2017Q1

REPORT INFORMATION
  Report Type: Spontaneous
  Country: US (occurrence: US)
  Receive Date: 20170103
  Receipt Date: 20170103
  Transmission Date: 20170428
  Serious: Yes (Life-Threatening)
  Sender: FDA-Public Use
  Company Number: None

PATIENT
  Age: 54 Year
  Sex: Male
  Weight: 103.6 kg

DRUGS (1)
  1. IBUTILIDE [Suspect]
     Active Substance: IBUTILIDE
     Indication: ATRIAL FIBRILLATION
     Route: 042
     Dates: start: 20161121, end: 20161121

REACTIONS (1)
  - Torsade de pointes [None]

NARRATIVE: CASE EVENT DATE: 20161121
